FAERS Safety Report 15279178 (Version 1)
Quarter: 2018Q3

REPORT INFORMATION
  Report Type: Spontaneous
  Country: US (occurrence: US)
  Receive Date: 20180730
  Receipt Date: 20180730
  Transmission Date: 20181010
  Serious: Yes (Life-Threatening, Hospitalization, Disabling, Other)
  Sender: FDA-Public Use
  Company Number: None

PATIENT
  Age: 13 Year
  Sex: Female
  Weight: 42.75 kg

DRUGS (1)
  1. RID LICE TREATMENT COMPLETE KIT [Suspect]
     Active Substance: PIPERONYL BUTOXIDE\PYRETHRUM EXTRACT
     Indication: LICE INFESTATION
     Dosage: ?          OTHER STRENGTH:OUNCES;QUANTITY:1 LIQUID;OTHER FREQUENCY:7 TO 10 DAYS;OTHER ROUTE:HAIR APPLICATION?

REACTIONS (1)
  - Hodgkin^s disease [None]

NARRATIVE: CASE EVENT DATE: 20180719
